FAERS Safety Report 9648830 (Version 3)
Quarter: 2014Q1

REPORT INFORMATION
  Report Type: Spontaneous
  Country: US (occurrence: US)
  Receive Date: 20131028
  Receipt Date: 20140121
  Transmission Date: 20141002
  Serious: No
  Sender: FDA-Public Use
  Company Number: US-TEVA-440720USA

PATIENT
  Age: 55 Year
  Sex: Female

DRUGS (20)
  1. COPAXONE [Suspect]
     Indication: MULTIPLE SCLEROSIS
     Dates: start: 20100329
  2. LOTRONEX [Concomitant]
  3. AMITRIPTYLINE [Concomitant]
  4. WELLBUTRIN [Concomitant]
  5. CALCIUM W/VITAMIN D NOS [Concomitant]
  6. ZYRTEC [Concomitant]
  7. QUESTRAN [Concomitant]
  8. NEXIUM [Concomitant]
  9. IRON [Concomitant]
  10. FLAXSEED OIL [Concomitant]
  11. GABAPENTIN [Concomitant]
  12. HYDROCODONE [Concomitant]
  13. DILAUDID [Concomitant]
  14. ATIVAN [Concomitant]
  15. SAVELLA [Concomitant]
  16. MULTIVIT [Concomitant]
  17. BYSTOLIC [Concomitant]
  18. ZOFRAN [Concomitant]
  19. TRAZODONE [Concomitant]
  20. GEODON [Concomitant]

REACTIONS (1)
  - Migraine [Unknown]
